FAERS Safety Report 23394362 (Version 1)
Quarter: 2024Q1

REPORT INFORMATION
  Report Type: Spontaneous
  Country: US (occurrence: US)
  Receive Date: 20240111
  Receipt Date: 20240111
  Transmission Date: 20240409
  Serious: No
  Sender: FDA-Public Use
  Company Number: US-SA-SAC20240108000153

PATIENT
  Age: 36 Year
  Sex: Male
  Weight: 77.11 kg

DRUGS (2)
  1. DUPIXENT [Suspect]
     Active Substance: DUPILUMAB
     Indication: Dermatitis atopic
     Dosage: 300 MG, QOW
     Route: 058
     Dates: start: 20231215
  2. DUPIXENT [Suspect]
     Active Substance: DUPILUMAB
     Dosage: 2 DF
     Dates: start: 2023

REACTIONS (3)
  - Nasopharyngitis [Unknown]
  - Dermatitis atopic [Not Recovered/Not Resolved]
  - Incorrect dose administered [Not Recovered/Not Resolved]

NARRATIVE: CASE EVENT DATE: 20231201
